FAERS Safety Report 11360749 (Version 1)
Quarter: 2015Q3

REPORT INFORMATION
  Report Type: Not Available
  Country: IN (occurrence: IN)
  Receive Date: 20150810
  Receipt Date: 20150810
  Transmission Date: 20151125
  Serious: No
  Sender: FDA-Public Use
  Company Number: IN-LUPIN PHARMACEUTICALS INC.-E2B_00003653

PATIENT
  Age: 5 Year
  Sex: Male

DRUGS (11)
  1. ZINCOFER [Concomitant]
     Indication: COUGH
     Route: 048
     Dates: start: 20150512
  2. NUROKIND [Concomitant]
     Indication: NASOPHARYNGITIS
  3. L CIN [Suspect]
     Active Substance: LEVOFLOXACIN
     Indication: COUGH
     Route: 048
     Dates: start: 20150512, end: 20150513
  4. AZELIDE XL [Concomitant]
     Indication: COUGH
     Route: 048
     Dates: start: 20150512
  5. AZELIDE XL [Concomitant]
     Indication: NASOPHARYNGITIS
  6. PIRITON [Concomitant]
     Active Substance: CHLORPHENIRAMINE MALEATE
     Indication: COUGH
     Route: 048
     Dates: start: 20150512
  7. ZINCOFER [Concomitant]
     Indication: NASOPHARYNGITIS
  8. NUROKIND [Concomitant]
     Indication: COUGH
     Route: 048
     Dates: start: 20150512
  9. PIRITON [Concomitant]
     Active Substance: CHLORPHENIRAMINE MALEATE
     Indication: NASOPHARYNGITIS
  10. L CIN [Suspect]
     Active Substance: LEVOFLOXACIN
     Route: 048
     Dates: start: 20150515
  11. L CIN [Suspect]
     Active Substance: LEVOFLOXACIN
     Indication: NASOPHARYNGITIS
     Dosage: 15 ML IN MORNING AND 10 ML IN EVENING
     Route: 048
     Dates: start: 20150514, end: 20150514

REACTIONS (2)
  - No adverse event [Unknown]
  - Incorrect dose administered [Unknown]

NARRATIVE: CASE EVENT DATE: 20150512
